FAERS Safety Report 20292060 (Version 1)
Quarter: 2022Q1

REPORT INFORMATION
  Report Type: Spontaneous
  Country: US (occurrence: US)
  Receive Date: 20220104
  Receipt Date: 20220104
  Transmission Date: 20220423
  Serious: No
  Sender: FDA-Public Use
  Company Number: US-PFIZER INC-2021557684

PATIENT
  Age: 75 Year
  Sex: Female
  Weight: 68.95 kg

DRUGS (1)
  1. TOVIAZ [Suspect]
     Active Substance: FESOTERODINE FUMARATE
     Indication: Hypertonic bladder
     Dosage: 8 MG, 1X/DAY (WITH WATER)
     Route: 048
     Dates: start: 20210504, end: 20210506

REACTIONS (1)
  - Urine flow decreased [Recovered/Resolved]

NARRATIVE: CASE EVENT DATE: 20210504
